FAERS Safety Report 8954769 (Version 10)
Quarter: 2013Q2

REPORT INFORMATION
  Report Type: Spontaneous
  Country: GB (occurrence: GB)
  Receive Date: 20121207
  Receipt Date: 20130401
  Transmission Date: 20140414
  Serious: Yes (Death, Hospitalization)
  Sender: FDA-Public Use
  Company Number: GB-VIIV HEALTHCARE LIMITED-B0849081A

PATIENT
  Age: 58 Year
  Sex: Male
  Weight: 70 kg

DRUGS (19)
  1. KIVEXA [Suspect]
     Indication: HIV INFECTION
     Dosage: 1TAB PER DAY
     Route: 048
     Dates: start: 20121109
  2. ABACAVIR [Suspect]
     Indication: HIV INFECTION
     Dosage: 600MG PER DAY
     Route: 048
     Dates: start: 20120816, end: 20120917
  3. DARUNAVIR [Suspect]
     Indication: HIV INFECTION
     Dosage: 800MG PER DAY
     Route: 048
     Dates: start: 20120816, end: 20120917
  4. RALTEGRAVIR [Suspect]
     Indication: HIV INFECTION
     Dosage: 400MG TWICE PER DAY
     Route: 048
     Dates: start: 20120816, end: 20120917
  5. SEPTRIN [Suspect]
     Indication: PRODUCT USED FOR UNKNOWN INDICATION
     Dosage: 960MG PER DAY
     Route: 065
     Dates: start: 20120803, end: 20120830
  6. NORVIR [Suspect]
     Indication: HIV INFECTION
     Dosage: 100MG PER DAY
     Route: 048
     Dates: start: 20120816, end: 20120917
  7. KALETRA [Suspect]
     Indication: HIV INFECTION
     Dosage: 100MG PER DAY
     Route: 048
     Dates: start: 20121019
  8. DAPSONE [Suspect]
     Indication: PRODUCT USED FOR UNKNOWN INDICATION
     Route: 065
     Dates: start: 20120830, end: 20120910
  9. KALETRA [Suspect]
     Indication: PRODUCT USED FOR UNKNOWN INDICATION
     Route: 065
     Dates: start: 20121107
  10. PREDNISOLONE [Concomitant]
     Dosage: 50MG PER DAY
     Dates: start: 20121007
  11. NIFEDIPINE MR [Concomitant]
     Dosage: 10MG PER DAY
     Dates: start: 20120928
  12. BISOPROLOL [Concomitant]
     Dosage: 5MG PER DAY
  13. RANITIDINE [Concomitant]
     Dosage: 300MG PER DAY
  14. ATORVASTATIN [Concomitant]
     Dosage: 10MG PER DAY
     Dates: start: 20120925
  15. PIRITON [Concomitant]
     Dosage: 4MG AS REQUIRED
  16. CLARITHROMYCIN [Concomitant]
  17. AZITHROMYCIN [Concomitant]
  18. FLUCONAZOLE [Concomitant]
     Dates: start: 20121011
  19. ACICLOVIR [Concomitant]
     Dates: start: 20121011

REACTIONS (33)
  - Toxic epidermal necrolysis [Fatal]
  - HIV associated nephropathy [Unknown]
  - Renal impairment [Unknown]
  - Drug reaction with eosinophilia and systemic symptoms [Not Recovered/Not Resolved]
  - Drug reaction with eosinophilia and systemic symptoms [Fatal]
  - Pruritus generalised [Unknown]
  - Rash maculo-papular [Unknown]
  - Nausea [Unknown]
  - Diarrhoea [Unknown]
  - Oedema [Unknown]
  - Induration [Unknown]
  - Hypotension [Unknown]
  - Tachycardia [Unknown]
  - Liver function test abnormal [Unknown]
  - Alanine aminotransferase abnormal [Unknown]
  - Blood alkaline phosphatase abnormal [Unknown]
  - Rash [Not Recovered/Not Resolved]
  - White blood cell count increased [Unknown]
  - Eosinophil count increased [Unknown]
  - Lymphocyte count increased [Unknown]
  - Drug interaction [Unknown]
  - Hepatic function abnormal [Unknown]
  - Pyrexia [Unknown]
  - Coronary artery disease [Unknown]
  - Skin exfoliation [Unknown]
  - Dermatitis [Unknown]
  - Platelet count decreased [Unknown]
  - Thrombocytopenia [Unknown]
  - Malaise [Unknown]
  - Asthenia [Unknown]
  - Metabolic acidosis [Unknown]
  - Abdominal pain [Unknown]
  - C-reactive protein increased [Unknown]
